FAERS Safety Report 8815952 (Version 2)
Quarter: 2014Q3

REPORT INFORMATION
  Report Type: Report from Study
  Country: US (occurrence: US)
  Receive Date: 20120928
  Receipt Date: 20140908
  Transmission Date: 20150326
  Serious: Yes (Other)
  Sender: FDA-Public Use
  Company Number: US-ROCHE-1127694

PATIENT
  Age: 61 Year
  Sex: Female
  Weight: 76.81 kg

DRUGS (9)
  1. IRINOTECAN [Concomitant]
     Active Substance: IRINOTECAN
  2. AVASTIN [Suspect]
     Active Substance: BEVACIZUMAB
     Indication: COLON CANCER
     Route: 042
     Dates: start: 20060922, end: 20070216
  3. XELODA [Suspect]
     Active Substance: CAPECITABINE
     Indication: COLON CANCER
     Route: 065
     Dates: end: 200612
  4. XELODA [Suspect]
     Active Substance: CAPECITABINE
     Indication: LUNG NEOPLASM MALIGNANT
  5. ERBITUX [Concomitant]
     Active Substance: CETUXIMAB
  6. AVASTIN [Suspect]
     Active Substance: BEVACIZUMAB
     Indication: COLORECTAL CANCER
  7. OXALIPLATIN. [Concomitant]
     Active Substance: OXALIPLATIN
  8. AVASTIN [Suspect]
     Active Substance: BEVACIZUMAB
     Indication: LUNG NEOPLASM MALIGNANT
  9. VECTIBIX [Concomitant]
     Active Substance: PANITUMUMAB

REACTIONS (5)
  - Hernia [Unknown]
  - Disease progression [Unknown]
  - Hypertension [Unknown]
  - Intestinal obstruction [Unknown]
  - Infection [Unknown]

NARRATIVE: CASE EVENT DATE: 200702
